FAERS Safety Report 7983081 (Version 3)
Quarter: 2013Q4

REPORT INFORMATION
  Report Type: Spontaneous
  Country: US (occurrence: US)
  Receive Date: 20110609
  Receipt Date: 20131114
  Transmission Date: 20140711
  Serious: Yes (Hospitalization, Other)
  Sender: FDA-Public Use
  Company Number: US-BAYER-2011-048445

PATIENT
  Age: 25 Year
  Sex: Female
  Weight: 65 kg

DRUGS (7)
  1. YAZ [Suspect]
     Indication: ACNE
     Dosage: UNK
     Route: 048
     Dates: start: 2008, end: 2009
  2. YAZ [Suspect]
     Indication: CONTRACEPTION
  3. YASMIN [Suspect]
     Indication: ACNE
     Dosage: UNK
     Route: 048
     Dates: start: 2008, end: 2009
  4. YASMIN [Suspect]
     Indication: CONTRACEPTION
  5. OCELLA [Suspect]
     Indication: ACNE
     Dosage: UNK
     Route: 048
     Dates: start: 2008, end: 2009
  6. OCELLA [Suspect]
     Indication: CONTRACEPTION
  7. PEPCID [Concomitant]
     Indication: ABDOMINAL PAIN
     Dosage: 20 MG, UNK
     Route: 048

REACTIONS (3)
  - Gallbladder disorder [None]
  - Cholecystitis acute [None]
  - Pain [None]
